FAERS Safety Report 22121585 (Version 1)
Quarter: 2023Q1

REPORT INFORMATION
  Report Type: Spontaneous
  Country: US (occurrence: None)
  Receive Date: 20230321
  Receipt Date: 20230321
  Transmission Date: 20230418
  Serious: Yes (Other)
  Sender: FDA-Public Use
  Company Number: None

PATIENT
  Age: 64 Year
  Sex: Male

DRUGS (11)
  1. TERIPARATIDE [Suspect]
     Active Substance: TERIPARATIDE
     Indication: Osteoporosis
     Dosage: FREQUENCY : DAILY;?
     Route: 058
     Dates: start: 20230306
  2. FLEXERIL [Concomitant]
     Active Substance: CYCLOBENZAPRINE HYDROCHLORIDE
  3. FLOMAX [Concomitant]
     Active Substance: TAMSULOSIN HYDROCHLORIDE
  4. LYRICA [Concomitant]
     Active Substance: PREGABALIN
  5. PERCOCET [Concomitant]
     Active Substance: ACETAMINOPHEN\OXYCODONE HYDROCHLORIDE
  6. POTASSIUM [Concomitant]
     Active Substance: POTASSIUM
  7. PRAVASTATIN [Concomitant]
     Active Substance: PRAVASTATIN
  8. PREDNISONE [Concomitant]
     Active Substance: PREDNISONE
  9. ROPINIROLE [Concomitant]
     Active Substance: ROPINIROLE
  10. TRELEGY ELLIPTA [Concomitant]
     Active Substance: FLUTICASONE FUROATE\UMECLIDINIUM BROMIDE\VILANTEROL TRIFENATATE
  11. XANAX [Concomitant]
     Active Substance: ALPRAZOLAM

REACTIONS (2)
  - Enuresis [None]
  - Product impurity [None]

NARRATIVE: CASE EVENT DATE: 20230309
